FAERS Safety Report 9163220 (Version 1)
Quarter: 2013Q1

REPORT INFORMATION
  Report Type: Spontaneous
  Country: US (occurrence: None)
  Receive Date: 20130221
  Receipt Date: 20130221
  Transmission Date: 20140127
  Serious: Yes (Other)
  Sender: FDA-Public Use
  Company Number: 2013AP003170

PATIENT
  Age: 73 Year
  Sex: Male

DRUGS (6)
  1. ENALAPRIL MALEATE (ENALAPRIL MALEATE) [Suspect]
     Indication: HYPERTENSION
     Route: 048
  2. SUMIAL (PROPRANOLOL HYDROCHLORIDE) [Concomitant]
  3. TAMSULOSIN HYDROCHLORIDE (TAMSULOSIN HYDROCLHORIDE) [Concomitant]
  4. OMEGAQ-3-ACID ETHYL ESTER (OMEGA-3-ACID ETHYL ESTER) [Concomitant]
  5. SIMVASTATIN (SIMVASTATIN) [Concomitant]
  6. LORAZEPAM (LORAZEPAM) [Concomitant]

REACTIONS (1)
  - Hypertension [None]
